FAERS Safety Report 13206330 (Version 1)
Quarter: 2017Q1

REPORT INFORMATION
  Report Type: Spontaneous
  Country: US (occurrence: US)
  Receive Date: 20170208
  Receipt Date: 20170208
  Transmission Date: 20170428
  Serious: Yes (Other)
  Sender: FDA-Public Use
  Company Number: None

PATIENT
  Age: 13 Year
  Sex: Male
  Weight: 44.1 kg

DRUGS (2)
  1. FLINTSTONES GUMMY VITAMINS [Concomitant]
  2. OSELTAMIVIR PHOSPHATE. [Suspect]
     Active Substance: OSELTAMIVIR PHOSPHATE
     Indication: INFLUENZA LIKE ILLNESS
     Dosage: ?          QUANTITY:1 CAPSULE(S);?
     Route: 048
     Dates: start: 20170207, end: 20170208

REACTIONS (4)
  - Delirium [None]
  - Moaning [None]
  - Speech disorder [None]
  - Agitation [None]

NARRATIVE: CASE EVENT DATE: 20170208
